FAERS Safety Report 5794753-8 (Version None)
Quarter: 2008Q2

REPORT INFORMATION
  Report Type: 
  Country: None (occurrence: None)
  Receive Date: 20080625
  Receipt Date: 20080616
  Transmission Date: 20081010
  Serious: Yes (Death, Other)
  Sender: FDA-Public Use
  Company Number: 08P-039-0458200-00

PATIENT
  Age: 5 Month
  Sex: Male

DRUGS (7)
  1. SYNAGIS [Suspect]
     Indication: LOWER RESPIRATORY TRACT INFECTION
     Dosage: 15 MCG/KG, 1 IN 1 M); INTRAMUSCULAR
     Route: 030
     Dates: start: 20080613, end: 20080613
  2. SYNAGIS [Suspect]
     Indication: PROPHYLAXIS
     Dosage: 15 MCG/KG, 1 IN 1 M); INTRAMUSCULAR
     Route: 030
     Dates: start: 20080613, end: 20080613
  3. SYNAGIS [Suspect]
     Indication: RESPIRATORY SYNCYTIAL VIRUS INFECTION
     Dosage: 15 MCG/KG, 1 IN 1 M); INTRAMUSCULAR
     Route: 030
     Dates: start: 20080613, end: 20080613
  4. TOCOPHERYL ACETATE [Concomitant]
  5. ASCORBIC ACID [Concomitant]
  6. ERGOCALCIFEROL [Concomitant]
  7. IRON [Concomitant]

REACTIONS (1)
  - ACUTE RESPIRATORY FAILURE [None]
